FAERS Safety Report 21707416 (Version 2)
Quarter: 2022Q4

REPORT INFORMATION
  Report Type: Report from Study
  Country: US (occurrence: US)
  Receive Date: 20221209
  Receipt Date: 20221213
  Transmission Date: 20230113
  Serious: No
  Sender: FDA-Public Use
  Company Number: US-ABBVIE-4230901

PATIENT
  Age: 79 Year
  Sex: Male
  Weight: 64.863 kg

DRUGS (6)
  1. IMBRUVICA [Suspect]
     Active Substance: IBRUTINIB
     Indication: Mantle cell lymphoma
     Dosage: FORM STRENGTH: 140 MILLIGRAM
     Route: 048
  2. IMBRUVICA [Suspect]
     Active Substance: IBRUTINIB
     Indication: Mantle cell lymphoma
     Dosage: FORM STRENGTH: 420 MILLIGRAM
     Route: 048
  3. IMBRUVICA [Suspect]
     Active Substance: IBRUTINIB
     Indication: Mantle cell lymphoma
     Dosage: FORM STRENGTH: 560 MILLIGRAM
     Route: 048
     Dates: start: 20210518
  4. XANAX [Concomitant]
     Active Substance: ALPRAZOLAM
     Indication: Product used for unknown indication
  5. HYDROMORPHONE [Concomitant]
     Active Substance: HYDROMORPHONE
     Indication: Pain
  6. CILOSTAZOL [Concomitant]
     Active Substance: CILOSTAZOL
     Indication: Product used for unknown indication

REACTIONS (7)
  - Full blood count decreased [Not Recovered/Not Resolved]
  - Asthenia [Not Recovered/Not Resolved]
  - Illness [Unknown]
  - Body temperature decreased [Unknown]
  - Drug hypersensitivity [Unknown]
  - COVID-19 [Recovered/Resolved]
  - Rhinorrhoea [Recovered/Resolved]

NARRATIVE: CASE EVENT DATE: 20220801
